FAERS Safety Report 7030867 (Version 2)
Quarter: 2020Q3

REPORT INFORMATION
  Report Type: Report from Study
  Country: RU (occurrence: RU)
  Receive Date: 20090623
  Receipt Date: 20090625
  Transmission Date: 20201104
  Serious: Yes (Life-Threatening, Hospitalization)
  Sender: FDA-Public Use
  Company Number: RU-WYE-H09293409

PATIENT
  Age: 72 Year
  Sex: Male
  Weight: 130 kg

DRUGS (3)
  1. BEVACIZUMAB. [Suspect]
     Active Substance: BEVACIZUMAB
     Indication: RENAL CELL CARCINOMA
     Route: 042
     Dates: start: 20090213, end: 20090508
  2. INTERFERON ALFA NOS [Suspect]
     Active Substance: INTERFERON ALFA-2A OR INTERFERON ALFA-2B
     Indication: RENAL CELL CARCINOMA
     Dosage: 9 MU, 3 TIMES A WEEK
     Route: 058
     Dates: start: 20090213, end: 20090508
  3. THEOPHYLLINE [Concomitant]
     Active Substance: THEOPHYLLINE ANHYDROUS
     Indication: BRONCHITIS CHRONIC
     Dosage: UNKNOWN
     Route: 065
     Dates: start: 19970920

REACTIONS (3)
  - Toxic encephalopathy [Recovered/Resolved]
  - Hypertensive crisis [Recovered/Resolved]
  - Vascular encephalopathy [Recovered/Resolved]

NARRATIVE: CASE EVENT DATE: 20090508
